FAERS Safety Report 8622546-2 (Version None)
Quarter: 2012Q3

REPORT INFORMATION
  Report Type: 
  Country: None (occurrence: None)
  Receive Date: 20120827
  Receipt Date: 20120824
  Transmission Date: 20120928
  Serious: No
  Sender: FDA-Public Use
  Company Number: US-PFIZER INC-2012208840

PATIENT
  Sex: Female

DRUGS (2)
  1. CELEBREX [Suspect]
     Indication: BACK PAIN
     Dosage: 200 MG FREQUENCY UNKNOWN
     Dates: start: 20120801
  2. CELEBREX [Suspect]
     Indication: ARTHRITIS

REACTIONS (1)
  - SOMNOLENCE [None]
